FAERS Safety Report 6068338-2 (Version None)
Quarter: 2009Q1

REPORT INFORMATION
  Report Type: 
  Country: None (occurrence: None)
  Receive Date: 20090206
  Receipt Date: 20090130
  Transmission Date: 20090719
  Serious: Yes (Death)
  Sender: FDA-Public Use
  Company Number: US-ROCHE-607045

PATIENT
  Sex: Female
  Weight: 68 kg

DRUGS (1)
  1. CAPECITABINE [Suspect]
     Dosage: RECEIVED MONDAY THROUGH FRIDAY DURING RADIATION
     Route: 048
     Dates: start: 20081208, end: 20081225

REACTIONS (3)
  - DEATH [None]
  - DECREASED APPETITE [None]
  - NAUSEA [None]
